FAERS Safety Report 25771399 (Version 1)
Quarter: 2025Q3

REPORT INFORMATION
  Report Type: Spontaneous
  Country: US (occurrence: US)
  Receive Date: 20250908
  Receipt Date: 20250908
  Transmission Date: 20251021
  Serious: No
  Sender: DOMPE FARMACEUTICI
  Company Number: US-FARMAPROD-202504-1333

PATIENT
  Age: 82 Year
  Sex: Female

DRUGS (6)
  1. OXERVATE [Suspect]
     Active Substance: CENEGERMIN-BKBJ
     Indication: Hypoaesthesia eye
     Route: 047
     Dates: start: 20250416
  2. ASPIRIN [Concomitant]
     Active Substance: ASPIRIN
  3. ATORVASTATIN CALCIUM [Concomitant]
     Active Substance: ATORVASTATIN CALCIUM
  4. MELOXICAM [Concomitant]
     Active Substance: MELOXICAM
  5. MULTIVITAMIN 50 PLUS [Concomitant]
  6. METOPROLOL SUCCINATE [Concomitant]
     Active Substance: METOPROLOL SUCCINATE

REACTIONS (8)
  - Pruritus [Unknown]
  - Eye irritation [Unknown]
  - Eye pain [Unknown]
  - Eye swelling [Unknown]
  - Ocular hyperaemia [Unknown]
  - Eye irritation [Unknown]
  - Vision blurred [Unknown]
  - Visual impairment [Unknown]

NARRATIVE: CASE EVENT DATE: 20250422
